FAERS Safety Report 13103986 (Version 1)
Quarter: 2017Q1

REPORT INFORMATION
  Report Type: Spontaneous
  Country: US (occurrence: US)
  Receive Date: 20170111
  Receipt Date: 20170111
  Transmission Date: 20170428
  Serious: No
  Sender: FDA-Public Use
  Company Number: US-009507513-1612USA013494

PATIENT
  Age: 60 Year
  Sex: Female

DRUGS (2)
  1. LASIX [Suspect]
     Active Substance: FUROSEMIDE
  2. PRINIVIL [Suspect]
     Active Substance: LISINOPRIL

REACTIONS (1)
  - Rash [Unknown]
